FAERS Safety Report 7286250-8 (Version None)
Quarter: 2011Q1

REPORT INFORMATION
  Report Type: 
  Country: None (occurrence: None)
  Receive Date: 20110210
  Receipt Date: 20110202
  Transmission Date: 20110831
  Serious: Yes (Hospitalization)
  Sender: FDA-Public Use
  Company Number: PHHY2011GR08469

PATIENT
  Age: 91 Year
  Sex: Female

DRUGS (3)
  1. EXELON [Suspect]
     Dosage: 4.6 MG, UNK
     Route: 062
  2. CYMBALTA [Concomitant]
     Dosage: UNK UKN, UNK
  3. MADOPAR [Concomitant]
     Dosage: 0.5 UKN, TID

REACTIONS (2)
  - HAEMORRHAGE [None]
  - CONTUSION [None]
